FAERS Safety Report 24008006 (Version 1)
Quarter: 2024Q2

REPORT INFORMATION
  Report Type: Spontaneous
  Country: FR (occurrence: FR)
  Receive Date: 20240625
  Receipt Date: 20240625
  Transmission Date: 20240716
  Serious: Yes (Other)
  Sender: FDA-Public Use
  Company Number: FR-PHARMAAND GMBH-2024PHR00388

PATIENT
  Sex: Female

DRUGS (1)
  1. PEGASYS [Suspect]
     Active Substance: PEGINTERFERON ALFA-2A
     Indication: Thrombocytopenia
     Dosage: PEGASYS 90 ?G AT THE DOSAGE OF ONE INJECTION PER WEEK
     Route: 058

REACTIONS (4)
  - Abortion spontaneous [Unknown]
  - Platelet count abnormal [Unknown]
  - Off label use [Recovered/Resolved]
  - Product dose omission issue [Recovered/Resolved]
